FAERS Safety Report 23564084 (Version 2)
Quarter: 2024Q1

REPORT INFORMATION
  Report Type: Other
  Country: US (occurrence: None)
  Receive Date: 20240226
  Receipt Date: 20240304
  Transmission Date: 20240410
  Serious: Yes (Hospitalization)
  Sender: FDA-Public Use
  Company Number: US-ROCHE-3512719

PATIENT
  Age: 66 Year
  Sex: Female
  Weight: 49.94 kg

DRUGS (1)
  1. OCREVUS [Suspect]
     Active Substance: OCRELIZUMAB
     Indication: Multiple sclerosis
     Dosage: 600 MG/10 ML?MOST RECENT DOSE OF OCRELIZUMAB RECEIVED ON 02/SEP/2023?LAST OCREVUS (OCRELIZUMAB) INFU
     Route: 042
     Dates: start: 20200415

REACTIONS (2)
  - Bacterial infection [Unknown]
  - Hypophagia [Not Recovered/Not Resolved]
